FAERS Safety Report 8881596 (Version 1)
Quarter: 2012Q4

REPORT INFORMATION
  Report Type: 
  Country: CN (occurrence: CN)
  Receive Date: 20121102
  Receipt Date: 20121102
  Transmission Date: 20130627
  Serious: Yes (Other)
  Sender: FDA-Public Use
  Company Number: CN-BAYER-2012-115192

PATIENT
  Age: 69 Year
  Sex: Female
  Weight: 58 kg

DRUGS (2)
  1. GLUCOBAY [Suspect]
     Indication: DIABETES
     Dosage: 50 mg, TID
     Route: 048
     Dates: start: 20110316, end: 20110323
  2. REPAGLINIDE [Concomitant]
     Indication: DECREASED BLOOD SUGAR

REACTIONS (1)
  - Hypoglycaemia [Recovering/Resolving]
